FAERS Safety Report 8167248-4 (Version None)
Quarter: 2012Q1

REPORT INFORMATION
  Report Type: 
  Country: None (occurrence: None)
  Receive Date: 20120227
  Receipt Date: 20120222
  Transmission Date: 20120608
  Serious: Yes (Hospitalization)
  Sender: FDA-Public Use
  Company Number: SE-PFIZER INC-2012046376

PATIENT
  Age: 64 Year
  Sex: Male

DRUGS (8)
  1. LOSARTAN [Concomitant]
     Dosage: UNK
  2. METOPROLOL [Concomitant]
     Dosage: UNK
  3. VARENICLINE TARTRATE [Suspect]
     Indication: SMOKING CESSATION THERAPY
     Dosage: 1 MG DAILY
     Route: 048
     Dates: start: 20111121, end: 20120107
  4. NITROLINGUAL [Concomitant]
     Dosage: UNK
  5. IMDUR [Concomitant]
     Dosage: UNK
  6. SIMVASTATIN [Concomitant]
     Dosage: UNK
  7. PROPAVAN [Concomitant]
     Dosage: UNK
  8. HUMALOG [Concomitant]
     Dosage: UNK

REACTIONS (6)
  - NAUSEA [None]
  - ATRIAL FIBRILLATION [None]
  - THROMBOCYTOPENIA [None]
  - DEPRESSED MOOD [None]
  - VOMITING [None]
  - HYPERTENSION [None]
